FAERS Safety Report 7178389-2 (Version None)
Quarter: 2011Q1

REPORT INFORMATION
  Report Type: 
  Country: None (occurrence: None)
  Receive Date: 20101220
  Receipt Date: 20101208
  Transmission Date: 20110831
  Serious: Yes (Other)
  Sender: FDA-Public Use
  Company Number: TN-WATSON-2010-15044

PATIENT
  Age: 45 Year
  Sex: Male

DRUGS (2)
  1. CYCLOSPORINE [Suspect]
     Indication: BEHCET'S SYNDROME
     Dosage: 3 MG/KG, DAILY
     Route: 065
     Dates: start: 20000601
  2. CYCLOSPORINE [Suspect]
     Indication: EYE DISORDER
     Dosage: 3 MG/KG, DAILY
     Route: 065
     Dates: end: 20000301

REACTIONS (3)
  - MENINGITIS ASEPTIC [None]
  - CENTRAL NERVOUS SYSTEM LESION [None]
  - BEHCET'S SYNDROME [None]
